FAERS Safety Report 9606778 (Version 2)
Quarter: 2013Q4

REPORT INFORMATION
  Report Type: Spontaneous
  Country: US (occurrence: US)
  Receive Date: 20131008
  Receipt Date: 20131008
  Transmission Date: 20140711
  Serious: No
  Sender: FDA-Public Use
  Company Number: US-AMGEN-USASP2013060571

PATIENT
  Age: 46 Year
  Sex: Female
  Weight: 41.27 kg

DRUGS (6)
  1. PROLIA [Suspect]
     Indication: OSTEOPOROSIS
     Dosage: 1 ML, Q6MO
     Route: 058
     Dates: start: 20130805
  2. VITAMIN D                          /00107901/ [Concomitant]
     Dosage: 1000 UNIT, UNK
  3. CITRACAL                           /00751520/ [Concomitant]
  4. PERCOCET                           /00446701/ [Concomitant]
  5. OXYCODONE [Concomitant]
  6. PROTONIX [Concomitant]

REACTIONS (4)
  - Paraesthesia [Recovering/Resolving]
  - Muscular weakness [Unknown]
  - Hypoaesthesia oral [Unknown]
  - Arthralgia [Not Recovered/Not Resolved]
